FAERS Safety Report 8501041-5 (Version None)
Quarter: 2012Q2

REPORT INFORMATION
  Report Type: 
  Country: None (occurrence: None)
  Receive Date: 20120405
  Receipt Date: 20110217
  Transmission Date: 20120825
  Serious: Yes (Hospitalization)
  Sender: FDA-Public Use
  Company Number: PHHY2011US13256

PATIENT

DRUGS (1)
  1. RECLAST [Suspect]

REACTIONS (1)
  - BONE PAIN [None]
